FAERS Safety Report 21628834 (Version 1)
Quarter: 2022Q4

REPORT INFORMATION
  Report Type: Report from Study
  Country: ES (occurrence: ES)
  Receive Date: 20221122
  Receipt Date: 20221122
  Transmission Date: 20230113
  Serious: Yes (Hospitalization)
  Sender: FDA-Public Use
  Company Number: None

PATIENT
  Age: 85 Year
  Sex: Male

DRUGS (9)
  1. ZOLEDRONIC ACID [Suspect]
     Active Substance: ZOLEDRONIC ACID
     Indication: Hypercalcaemia of malignancy
     Dosage: 4 WEEKS,
     Route: 042
     Dates: start: 20191008, end: 20211203
  2. FUROSEMIDE [Concomitant]
     Active Substance: FUROSEMIDE
     Dosage: 30 TABLETS, 12 HOURS
     Route: 048
     Dates: start: 20200818
  3. DOXAZOSIN MESYLATE [Concomitant]
     Active Substance: DOXAZOSIN MESYLATE
     Dosage: 28 TABLET
     Route: 048
     Dates: start: 20180625
  4. HYDROCHLOROTHIAZIDE\VALSARTAN [Concomitant]
     Active Substance: HYDROCHLOROTHIAZIDE\VALSARTAN
     Dosage: 28 TABLETS,160 MG/25 MG
     Route: 048
     Dates: start: 20180625
  5. REPAGLINIDE [Concomitant]
     Active Substance: REPAGLINIDE
     Dosage: 90 TABLETS
     Route: 048
     Dates: start: 20170116
  6. METFORMIN HYDROCHLORIDE [Concomitant]
     Active Substance: METFORMIN HYDROCHLORIDE
     Dosage: 50 TABLETS
     Route: 048
     Dates: start: 20170116
  7. OMEPRAZOLE [Concomitant]
     Active Substance: OMEPRAZOLE
     Dosage: 28 CAPSULES
     Route: 048
     Dates: start: 20190709
  8. CALCIFEDIOL [Concomitant]
     Active Substance: CALCIFEDIOL
     Dosage: 10 DRINKABLE AMPOULES OF 1.5 ML
     Route: 048
     Dates: start: 20191105
  9. CALCIUM CARBONATE\CHOLECALCIFEROL [Concomitant]
     Active Substance: CALCIUM CARBONATE\CHOLECALCIFEROL
     Dosage: 1000 MG/880 IU, 30 SACHETS
     Route: 048
     Dates: start: 20191105

REACTIONS (2)
  - Osteonecrosis of jaw [Unknown]
  - Ludwig angina [Recovered/Resolved]

NARRATIVE: CASE EVENT DATE: 20220101
